FAERS Safety Report 8586140-4 (Version None)
Quarter: 2012Q3

REPORT INFORMATION
  Report Type: 
  Country: None (occurrence: None)
  Receive Date: 20120810
  Receipt Date: 20120803
  Transmission Date: 20120928
  Serious: Yes (Hospitalization, Other)
  Sender: FDA-Public Use
  Company Number: JP-ROCHE-1080561

PATIENT
  Sex: Female
  Weight: 57 kg

DRUGS (7)
  1. CELEBREX [Concomitant]
     Indication: RHEUMATOID VASCULITIS
     Route: 048
     Dates: start: 20100305
  2. PREDNISOLONE [Concomitant]
     Indication: RHEUMATOID VASCULITIS
     Route: 048
     Dates: start: 20080108, end: 20091110
  3. LANSOPRAZOLE [Concomitant]
     Indication: RHEUMATOID VASCULITIS
     Route: 048
     Dates: start: 20100305
  4. ACTEMRA [Suspect]
     Indication: RHEUMATOID VASCULITIS
     Route: 041
     Dates: start: 20081021, end: 20090310
  5. PROGRAF [Concomitant]
     Indication: RHEUMATOID VASCULITIS
     Route: 048
     Dates: start: 20090210, end: 20100722
  6. ACTEMRA [Suspect]
     Route: 041
     Dates: start: 20090612, end: 20090707
  7. ACTEMRA [Suspect]
     Route: 041
     Dates: start: 20090814, end: 20100420

REACTIONS (3)
  - JOINT DISLOCATION [None]
  - PARESIS [None]
  - IMPAIRED HEALING [None]
